FAERS Safety Report 4948290-0 (Version None)
Quarter: 2006Q1

REPORT INFORMATION
  Report Type: 
  Country: None (occurrence: None)
  Receive Date: 20060313
  Receipt Date: 20060301
  Transmission Date: 20060701
  Serious: Yes (Death)
  Sender: FDA-Public Use
  Company Number: 222772

PATIENT

DRUGS (2)
  1. MABTHERA (RITUXIMAB) CONC FOR SOLUTION FOR INFUSION [Suspect]
     Indication: B-CELL LYMPHOMA
     Dosage: 25 ML
  2. ALLOPURINOL [Concomitant]

REACTIONS (1)
  - MYOCARDIAL INFARCTION [None]
